FAERS Safety Report 12960583 (Version 3)
Quarter: 2016Q4

REPORT INFORMATION
  Report Type: Spontaneous
  Country: US (occurrence: US)
  Receive Date: 20161121
  Receipt Date: 20161217
  Transmission Date: 20170207
  Serious: Yes (Death, Hospitalization, Other)
  Sender: FDA-Public Use
  Company Number: US-009507513-1611USA007124

PATIENT
  Sex: Male

DRUGS (2)
  1. NOXAFIL [Suspect]
     Active Substance: POSACONAZOLE
     Indication: INFECTION PROPHYLAXIS
  2. NOXAFIL [Suspect]
     Active Substance: POSACONAZOLE
     Indication: CHEMOTHERAPY
     Dosage: UNK
     Route: 048

REACTIONS (3)
  - Acute leukaemia [Fatal]
  - Adverse event [Unknown]
  - Product use issue [Unknown]
